FAERS Safety Report 9071094 (Version 1)
Quarter: 2013Q1

REPORT INFORMATION
  Report Type: Spontaneous
  Country: US (occurrence: US)
  Receive Date: 20130206
  Receipt Date: 20130206
  Transmission Date: 20140127
  Serious: No
  Sender: FDA-Public Use
  Company Number: US-ALLERGAN-1208661US

PATIENT
  Age: 78 Year
  Sex: Female

DRUGS (1)
  1. RESTASIS? [Suspect]
     Indication: DRY EYE
     Dosage: 2 GTT, BID
     Route: 047
     Dates: start: 20120531

REACTIONS (7)
  - Dry mouth [Unknown]
  - Breath odour [Unknown]
  - Diplopia [Unknown]
  - Lacrimal disorder [Unknown]
  - Drug ineffective [Unknown]
  - Vision blurred [Unknown]
  - Eye discharge [Unknown]
